FAERS Safety Report 16567959 (Version 7)
Quarter: 2020Q2

REPORT INFORMATION
  Report Type: Report from Study
  Country: US (occurrence: US)
  Receive Date: 20190712
  Receipt Date: 20200527
  Transmission Date: 20200713
  Serious: Yes (Hospitalization, Other)
  Sender: FDA-Public Use
  Company Number: US-ACTELION-A-US2019-193023

PATIENT
  Age: 68 Year
  Sex: Male

DRUGS (21)
  1. GABAPENTIN. [Concomitant]
     Active Substance: GABAPENTIN
  2. PANTOPRAZOLE [Concomitant]
     Active Substance: PANTOPRAZOLE
  3. NORCO [Concomitant]
     Active Substance: ACETAMINOPHEN\HYDROCODONE BITARTRATE
  4. ANUCORT-HC [Concomitant]
     Active Substance: HYDROCORTISONE ACETATE
  5. TYVASO [Concomitant]
     Active Substance: TREPROSTINIL
  6. ALBUTEROL HFA [Concomitant]
     Active Substance: ALBUTEROL SULFATE
  7. AMIODARONE [Concomitant]
     Active Substance: AMIODARONE
  8. APIXABAN [Concomitant]
     Active Substance: APIXABAN
  9. SILDENAFIL. [Concomitant]
     Active Substance: SILDENAFIL
  10. TORSEMIDE. [Concomitant]
     Active Substance: TORSEMIDE
  11. TRAZODONE [Concomitant]
     Active Substance: TRAZODONE HYDROCHLORIDE
  12. OPSUMIT [Suspect]
     Active Substance: MACITENTAN
     Dosage: 10 MG, QD
     Route: 048
     Dates: start: 201608
  13. EPLERENONE. [Concomitant]
     Active Substance: EPLERENONE
  14. NARCAN [Concomitant]
     Active Substance: NALOXONE HYDROCHLORIDE
  15. OPSUMIT [Suspect]
     Active Substance: MACITENTAN
     Indication: PULMONARY ARTERIAL HYPERTENSION
     Dosage: 10 MG
     Route: 048
     Dates: start: 201606
  16. ATORVASTATIN [Concomitant]
     Active Substance: ATORVASTATIN
  17. FAMOTIDINE. [Concomitant]
     Active Substance: FAMOTIDINE
  18. ALLOPURINOL. [Concomitant]
     Active Substance: ALLOPURINOL
  19. ASPIRIN. [Concomitant]
     Active Substance: ASPIRIN
  20. HYDROCORTISONE. [Concomitant]
     Active Substance: HYDROCORTISONE
     Route: 061
  21. VENTOLIN HFA [Concomitant]
     Active Substance: ALBUTEROL SULFATE

REACTIONS (32)
  - Cardiac failure [Unknown]
  - Pneumonia [Unknown]
  - Dyspnoea [Unknown]
  - Chest pain [Unknown]
  - Oedema peripheral [Unknown]
  - Pain [Unknown]
  - Brain natriuretic peptide increased [Unknown]
  - Right ventricular failure [Unknown]
  - Abdominal pain [Unknown]
  - Erythema [Unknown]
  - Pulmonary hypertension [Unknown]
  - Nasal congestion [Unknown]
  - Arthropod bite [Unknown]
  - Abscess [Unknown]
  - Corneal abrasion [Unknown]
  - Faeces discoloured [Unknown]
  - Haemoglobin decreased [Unknown]
  - Swelling [Unknown]
  - Myocardial ischaemia [Unknown]
  - Upper respiratory tract infection [Unknown]
  - Eye pain [Unknown]
  - Ocular hyperaemia [Unknown]
  - Dizziness [Unknown]
  - Gastroenteritis [Unknown]
  - Productive cough [Unknown]
  - Troponin increased [Unknown]
  - Pain in extremity [Not Recovered/Not Resolved]
  - Diarrhoea [Unknown]
  - Pyrexia [Unknown]
  - Chest discomfort [Unknown]
  - Haemorrhoids [Unknown]
  - Oropharyngeal pain [Unknown]

NARRATIVE: CASE EVENT DATE: 20190531
